FAERS Safety Report 9449698 (Version 1)
Quarter: 2013Q3

REPORT INFORMATION
  Report Type: Other
  Country: DE (occurrence: DE)
  Receive Date: 20130809
  Receipt Date: 20130809
  Transmission Date: 20140515
  Serious: Yes (Other)
  Sender: FDA-Public Use
  Company Number: DE-LUPIN PHARMACEUTICALS INC.-E2B_00001135

PATIENT
  Sex: Male
  Weight: 3.13 kg

DRUGS (2)
  1. SERTRALIN [Suspect]
     Indication: DEPRESSION
     Route: 063
     Dates: start: 20080612, end: 20080625
  2. SERTRALIN [Suspect]
     Route: 063
     Dates: start: 20080626, end: 20080701

REACTIONS (3)
  - Restlessness [Recovered/Resolved]
  - Frequent bowel movements [Not Recovered/Not Resolved]
  - Exposure during breast feeding [Recovered/Resolved]
